FAERS Safety Report 13881316 (Version 1)
Quarter: 2017Q3

REPORT INFORMATION
  Report Type: Spontaneous
  Country: US (occurrence: US)
  Receive Date: 20170818
  Receipt Date: 20170818
  Transmission Date: 20171127
  Serious: No
  Sender: FDA-Public Use
  Company Number: US-ENDO PHARMACEUTICALS INC-2017-001351

PATIENT
  Sex: Female
  Weight: 81.63 kg

DRUGS (2)
  1. VICODIN [Concomitant]
     Active Substance: ACETAMINOPHEN\HYDROCODONE BITARTRATE
     Indication: MIGRAINE
  2. SUMAVEL DOSEPRO [Suspect]
     Active Substance: SUMATRIPTAN SUCCINATE
     Indication: MIGRAINE
     Dosage: INJECTED INTO THE ABDOMEN OR QUADRICEP AS NEEDED
     Route: 065
     Dates: start: 201511

REACTIONS (3)
  - Device malfunction [Recovered/Resolved]
  - Drug dose omission [Unknown]
  - Injection site pain [Unknown]
